FAERS Safety Report 13771078 (Version 1)
Quarter: 2017Q3

REPORT INFORMATION
  Report Type: Spontaneous
  Country: US (occurrence: US)
  Receive Date: 20170720
  Receipt Date: 20170720
  Transmission Date: 20171127
  Serious: No
  Sender: FDA-Public Use
  Company Number: US-TEVA-722650USA

PATIENT
  Age: 50 Year
  Sex: Male
  Weight: 119 kg

DRUGS (1)
  1. LISINOPRIL. [Suspect]
     Active Substance: LISINOPRIL

REACTIONS (1)
  - Dermatitis herpetiformis [Unknown]

NARRATIVE: CASE EVENT DATE: 201604
